FAERS Safety Report 25089541 (Version 1)
Quarter: 2025Q1

REPORT INFORMATION
  Report Type: Spontaneous
  Country: GB (occurrence: GB)
  Receive Date: 20250318
  Receipt Date: 20250318
  Transmission Date: 20250409
  Serious: Yes (Other)
  Sender: B BRAUN
  Company Number: GB-B.Braun Medical Inc.-2173088

PATIENT
  Age: 53 Year
  Sex: Female
  Weight: 67 kg

DRUGS (3)
  1. METRONIDAZOLE [Suspect]
     Active Substance: METRONIDAZOLE
     Indication: Dental care
     Dates: start: 20250227, end: 20250302
  2. LANSOPRAZOLE [Suspect]
     Active Substance: LANSOPRAZOLE
  3. CLARITHROMYCIN LACTOBIONATE [Suspect]
     Active Substance: CLARITHROMYCIN LACTOBIONATE

REACTIONS (10)
  - Chromaturia [Recovered/Resolved with Sequelae]
  - Gait disturbance [Recovering/Resolving]
  - Feeling cold [Recovering/Resolving]
  - Nausea [Recovered/Resolved]
  - Ataxia [Not Recovered/Not Resolved]
  - Brain fog [Recovering/Resolving]
  - Hyperacusis [Recovering/Resolving]
  - Headache [Recovering/Resolving]
  - Dizziness [Not Recovered/Not Resolved]
  - Emotional disorder [Recovering/Resolving]
